FAERS Safety Report 7955732-5 (Version None)
Quarter: 2011Q4

REPORT INFORMATION
  Report Type: 
  Country: None (occurrence: None)
  Receive Date: 20111204
  Receipt Date: 20110916
  Transmission Date: 20120403
  Serious: Yes (Other)
  Sender: FDA-Public Use
  Company Number: PHHY2011JP104373

PATIENT

DRUGS (1)
  1. ZOMETA [Suspect]
     Indication: BONE LESION
     Dosage: UNK UKN, UNK
     Route: 041
     Dates: start: 20110601, end: 20110908

REACTIONS (2)
  - PYREXIA [None]
  - VIRAL INFECTION [None]
